FAERS Safety Report 4472716-2 (Version None)
Quarter: 2004Q4

REPORT INFORMATION
  Report Type: 
  Country: None (occurrence: None)
  Receive Date: 20041012
  Receipt Date: 20041012
  Transmission Date: 20050328
  Serious: Yes (Hospitalization)
  Sender: FDA-Public Use
  Company Number: None

PATIENT
  Age: 59 Year
  Sex: Female

DRUGS (1)
  1. CEFDINIR 300 MG PO BID X 7 DAYS INITIATED 1/27/03 [Suspect]
     Dosage: 300 MG PO BID X 7 DAYS
     Route: 048
     Dates: start: 20030127

REACTIONS (1)
  - CLOSTRIDIUM COLITIS [None]
